FAERS Safety Report 15280996 (Version 1)
Quarter: 2018Q3

REPORT INFORMATION
  Report Type: Spontaneous
  Country: IE (occurrence: IE)
  Receive Date: 20180815
  Receipt Date: 20180815
  Transmission Date: 20181010
  Serious: Yes (Disabling)
  Sender: FDA-Public Use
  Company Number: IE-AMGEN-IRLSP2018062794

PATIENT
  Age: 17 Year
  Sex: Female

DRUGS (1)
  1. ENBREL [Suspect]
     Active Substance: ETANERCEPT
     Indication: JUVENILE IDIOPATHIC ARTHRITIS
     Dosage: 30 MG, WEEKLY
     Route: 065
     Dates: start: 201708, end: 201712

REACTIONS (7)
  - Rash generalised [Recovered/Resolved]
  - Dysarthria [Recovered/Resolved]
  - Apathy [Recovered/Resolved]
  - Fatigue [Recovered/Resolved]
  - Mood altered [Recovered/Resolved]
  - Drug ineffective [Unknown]
  - Sleep attacks [Recovered/Resolved]

NARRATIVE: CASE EVENT DATE: 2017
